FAERS Safety Report 4772900-4 (Version None)
Quarter: 2005Q3

REPORT INFORMATION
  Report Type: 
  Country: None (occurrence: None)
  Receive Date: 20050916
  Receipt Date: 20050802
  Transmission Date: 20060218
  Serious: Yes (Other)
  Sender: FDA-Public Use
  Company Number: 2005102476

PATIENT
  Age: 58 Year
  Sex: Female
  Weight: 78 kg

DRUGS (10)
  1. NICORETTE [Suspect]
     Indication: SMOKING CESSATION THERAPY
     Dosage: 10 MG PATCH EVERY DAY, TRANSDERMAL
     Route: 062
     Dates: start: 20050629, end: 20050711
  2. FLUTICASONE PROPIONATE [Concomitant]
  3. LABETALOL HYDROCHLORIDE [Concomitant]
  4. OMEPRAZOLE [Concomitant]
  5. METFORMIN HCL [Concomitant]
  6. GLIPIZIDE [Concomitant]
  7. ATORVASTATIN CALCIUM [Concomitant]
  8. ASPIRIN [Concomitant]
  9. PIOGLITAZONE HCL [Concomitant]
  10. GLIBOMET (GLIBENCLAMIDE, METFORMIN HYDROCHLORIDE) [Concomitant]

REACTIONS (14)
  - ANOREXIA [None]
  - ARTHRALGIA [None]
  - ASTHENIA [None]
  - BLINDNESS [None]
  - BLINDNESS TRANSIENT [None]
  - DIZZINESS [None]
  - HEADACHE [None]
  - LETHARGY [None]
  - MALAISE [None]
  - MYALGIA [None]
  - NAUSEA [None]
  - PAIN [None]
  - VISION BLURRED [None]
  - VOMITING [None]
